FAERS Safety Report 9554170 (Version 1)
Quarter: 2013Q3

REPORT INFORMATION
  Report Type: Spontaneous
  Country: FR (occurrence: FR)
  Receive Date: 20130925
  Receipt Date: 20130925
  Transmission Date: 20140515
  Serious: Yes (Hospitalization, Other)
  Sender: FDA-Public Use
  Company Number: US-ASTRAZENECA-2013SE71291

PATIENT
  Age: 87 Year
  Sex: Female

DRUGS (14)
  1. KALEORID [Suspect]
  2. ESOMEPRAZOLE (MYLAN) [Interacting]
     Route: 048
  3. GLIMEPIRIDE (MYLAN) [Interacting]
  4. RAMIPRIL (MYLAN) [Interacting]
  5. ONGLYZA (BMS) [Interacting]
     Route: 048
  6. SOTALOL HCL (BAYER) [Interacting]
  7. ALPRAZOLAM [Interacting]
  8. STRESAM [Interacting]
  9. FUROSEMIDE [Interacting]
  10. LORAZEPAM (MYLAN) [Interacting]
  11. BISOPROLOL [Interacting]
     Dosage: BISOCE 5 MG
  12. TARDYFERON (MEAD JOHNSON) [Interacting]
  13. DOMPERIDONE (MYLAN) [Interacting]
  14. PRADAXA [Interacting]

REACTIONS (2)
  - Drug interaction [Unknown]
  - Syncope [Unknown]
